FAERS Safety Report 23084420 (Version 3)
Quarter: 2024Q1

REPORT INFORMATION
  Report Type: Spontaneous
  Country: US (occurrence: US)
  Receive Date: 20231019
  Receipt Date: 20240108
  Transmission Date: 20240409
  Serious: Yes (Hospitalization, Other)
  Sender: FDA-Public Use
  Company Number: US-PFIZER INC-202200364196

PATIENT
  Age: 80 Year
  Sex: Female
  Weight: 68.49 kg

DRUGS (7)
  1. VYNDAMAX [Suspect]
     Active Substance: TAFAMIDIS
     Indication: Cardiac amyloidosis
     Dosage: 61 MG, 1X/DAY
     Route: 048
     Dates: start: 202008, end: 20220218
  2. VYNDAMAX [Suspect]
     Active Substance: TAFAMIDIS
     Dosage: 61 MG, 1X/DAY
     Route: 048
  3. LISINOPRIL [Concomitant]
     Active Substance: LISINOPRIL
     Indication: Blood pressure abnormal
     Dosage: 5 MG
     Route: 048
  4. AMLODIPINE [Concomitant]
     Active Substance: AMLODIPINE BESYLATE
     Indication: Blood pressure abnormal
     Dosage: 5 MG
     Route: 048
  5. TYLENOL [Concomitant]
     Active Substance: ACETAMINOPHEN
     Indication: Arthritis
     Dosage: 500 MG (TAKE 2 TYLENOL A DAY)
     Route: 048
  6. ASPIRIN [Concomitant]
     Active Substance: ASPIRIN
     Dosage: 81 MG
  7. GABAPENTIN [Concomitant]
     Active Substance: GABAPENTIN
     Indication: Migraine
     Dosage: 100 MG
     Route: 048

REACTIONS (3)
  - Gastrointestinal haemorrhage [Unknown]
  - Full blood count abnormal [Unknown]
  - Haematemesis [Unknown]

NARRATIVE: CASE EVENT DATE: 20230101
